FAERS Safety Report 13536893 (Version 4)
Quarter: 2017Q3

REPORT INFORMATION
  Report Type: Spontaneous
  Country: ES (occurrence: ES)
  Receive Date: 20170511
  Receipt Date: 20170925
  Transmission Date: 20171127
  Serious: Yes (Death, Hospitalization, Other)
  Sender: FDA-Public Use
  Company Number: ES-ALEXION-A201705016

PATIENT
  Age: 14 Year
  Sex: Female

DRUGS (2)
  1. TACROLIMUS. [Concomitant]
     Active Substance: TACROLIMUS
     Indication: PRODUCT USED FOR UNKNOWN INDICATION
     Route: 065
  2. SOLIRIS [Suspect]
     Active Substance: ECULIZUMAB
     Indication: HAEMOLYTIC URAEMIC SYNDROME
     Dosage: UNK, SINGLE
     Route: 065
     Dates: start: 20170428, end: 20170428

REACTIONS (4)
  - Multiple organ dysfunction syndrome [Fatal]
  - Lymphoproliferative disorder [Fatal]
  - Gastrointestinal haemorrhage [Fatal]
  - Post procedural complication [Fatal]

NARRATIVE: CASE EVENT DATE: 20170405
